FAERS Safety Report 7726446-1 (Version None)
Quarter: 2011Q3

REPORT INFORMATION
  Report Type: 
  Country: None (occurrence: None)
  Receive Date: 20110902
  Receipt Date: 20110829
  Transmission Date: 20111222
  Serious: Yes (Hospitalization)
  Sender: FDA-Public Use
  Company Number: IT-PFIZER INC-2011202533

PATIENT
  Age: 72 Year
  Sex: Male

DRUGS (2)
  1. FLUOROURACIL [Suspect]
     Indication: METASTATIC GASTRIC CANCER
     Dosage: 3360 MG, CYCLIC
     Route: 042
     Dates: start: 20110804, end: 20110804
  2. CAMPTOSAR [Suspect]
     Indication: METASTATIC GASTRIC CANCER
     Dosage: 270 MG, CYCLIC
     Route: 042
     Dates: start: 20110804, end: 20110804

REACTIONS (3)
  - PNEUMONIA [None]
  - LEUKOPENIA [None]
  - PYREXIA [None]
